FAERS Safety Report 22101002 (Version 4)
Quarter: 2023Q1

REPORT INFORMATION
  Report Type: Spontaneous
  Country: MY (occurrence: MY)
  Receive Date: 20230316
  Receipt Date: 20230329
  Transmission Date: 20230418
  Serious: Yes (Life-Threatening, Other)
  Sender: FDA-Public Use
  Company Number: MY-KYOWAKIRIN-2023AKK003736

PATIENT
  Age: 50 Year
  Sex: Male

DRUGS (1)
  1. DARBEPOETIN ALFA [Suspect]
     Active Substance: DARBEPOETIN ALFA
     Indication: Anaemia
     Dosage: 20 MCG/WEEKLY
     Route: 042
     Dates: start: 20220802, end: 20230211

REACTIONS (1)
  - Aplasia pure red cell [Unknown]
